FAERS Safety Report 26136857 (Version 1)
Quarter: 2025Q4

REPORT INFORMATION
  Report Type: Spontaneous
  Country: US (occurrence: None)
  Receive Date: 20251209
  Receipt Date: 20251209
  Transmission Date: 20260117
  Serious: Yes (Life-Threatening, Hospitalization)
  Sender: FDA-CTU
  Company Number: None

PATIENT
  Age: 68 Year
  Sex: Male
  Weight: 85.5 kg

DRUGS (1)
  1. KISUNLA [Suspect]
     Active Substance: DONANEMAB-AZBT
     Indication: Cognitive disorder
     Dosage: 1400 MG  EVERY 4 WEEKS INTRAVENOUS
     Route: 042

REACTIONS (6)
  - Infusion related reaction [None]
  - Unresponsive to stimuli [None]
  - Pallor [None]
  - Apnoea [None]
  - Hyperhidrosis [None]
  - Blood pressure immeasurable [None]

NARRATIVE: CASE EVENT DATE: 20251208
